FAERS Safety Report 18611655 (Version 1)
Quarter: 2020Q4

REPORT INFORMATION
  Report Type: Spontaneous
  Country: US (occurrence: US)
  Receive Date: 20201214
  Receipt Date: 20201214
  Transmission Date: 20210114
  Serious: No
  Sender: FDA-Public Use
  Company Number: US-009507513-2011USA010865

PATIENT
  Age: 62 Year
  Sex: Male

DRUGS (2)
  1. DENOSUMAB [Concomitant]
     Active Substance: DENOSUMAB
     Indication: ADENOCARCINOMA OF SALIVARY GLAND
     Dosage: UNK
     Dates: start: 201605
  2. KEYTRUDA [Suspect]
     Active Substance: PEMBROLIZUMAB
     Indication: ADENOCARCINOMA OF SALIVARY GLAND
     Dosage: UNK
     Dates: start: 201605

REACTIONS (1)
  - Off label use [Unknown]

NARRATIVE: CASE EVENT DATE: 201605
